FAERS Safety Report 11924529 (Version 1)
Quarter: 2016Q1

REPORT INFORMATION
  Report Type: Spontaneous
  Country: DK (occurrence: DK)
  Receive Date: 20160118
  Receipt Date: 20160118
  Transmission Date: 20160526
  Serious: Yes (Hospitalization, Disabling)
  Sender: FDA-Public Use
  Company Number: DK-GE HEALTHCARE MEDICAL DIAGNOSTICS-OMPQ-E2B_00000202

PATIENT
  Age: 60 Year
  Sex: Male

DRUGS (9)
  1. SEROQUEL [Interacting]
     Active Substance: QUETIAPINE FUMARATE
     Indication: PANIC DISORDER
     Dosage: DOSIS: 50 MG+25MG+25 MG
     Route: 065
     Dates: end: 20151215
  2. CLOPIDOGREL [Concomitant]
     Active Substance: CLOPIDOGREL BISULFATE
     Route: 048
  3. PANTOPRAZOLE [Concomitant]
     Active Substance: PANTOPRAZOLE SODIUM
  4. TRANDOLAPRIL. [Concomitant]
     Active Substance: TRANDOLAPRIL
  5. OMNIPAQUE [Suspect]
     Active Substance: IOHEXOL
     Indication: PRODUCT USED FOR UNKNOWN INDICATION
     Route: 065
     Dates: start: 20151112, end: 20151112
  6. OMNIPAQUE [Interacting]
     Active Substance: IOHEXOL
     Indication: DIAGNOSTIC PROCEDURE
  7. SEROQUEL [Interacting]
     Active Substance: QUETIAPINE FUMARATE
     Route: 065
     Dates: end: 20151215
  8. TRINTELLIX [Concomitant]
     Active Substance: VORTIOXETINE HYDROBROMIDE
  9. METOPROLOL. [Concomitant]
     Active Substance: METOPROLOL

REACTIONS (1)
  - Acute kidney injury [Not Recovered/Not Resolved]

NARRATIVE: CASE EVENT DATE: 201511
